FAERS Safety Report 5674897-1 (Version None)
Quarter: 2008Q2

REPORT INFORMATION
  Report Type: 
  Country: None (occurrence: None)
  Receive Date: 20080305
  Receipt Date: 20070404
  Transmission Date: 20081010
  Serious: Yes (Other)
  Sender: FDA-Public Use
  Company Number: BDI-009331

PATIENT
  Sex: Male

DRUGS (1)
  1. ISOVUE-200 [Suspect]
     Indication: SPINAL MYELOGRAM
     Dosage: INTRATHECAL
     Route: 037

REACTIONS (5)
  - BACK DISORDER [None]
  - CONVULSION [None]
  - GRAND MAL CONVULSION [None]
  - TONGUE BITING [None]
  - URINARY INCONTINENCE [None]
